FAERS Safety Report 13582575 (Version 2)
Quarter: 2017Q2

REPORT INFORMATION
  Report Type: Spontaneous
  Country: RU (occurrence: RU)
  Receive Date: 20170525
  Receipt Date: 20170615
  Transmission Date: 20170830
  Serious: Yes (Other)
  Sender: FDA-Public Use
  Company Number: RU-ASTRAZENECA-2017SE54344

PATIENT
  Age: 65 Year
  Sex: Female
  Weight: 98 kg

DRUGS (7)
  1. BISOGAMMA [Concomitant]
     Active Substance: BISOPROLOL FUMARATE
  2. CORDIPIN [Concomitant]
  3. CRESTOR [Suspect]
     Active Substance: ROSUVASTATIN CALCIUM
     Indication: MYOCARDIAL INFARCTION
     Route: 048
  4. BRILINTA [Suspect]
     Active Substance: TICAGRELOR
     Route: 048
     Dates: start: 201609
  5. VEROSPIRON [Concomitant]
     Active Substance: SPIRONOLACTONE
  6. THROMBO ASS [Concomitant]
     Active Substance: ASPIRIN
  7. METFORMIN [Concomitant]
     Active Substance: METFORMIN HYDROCHLORIDE

REACTIONS (8)
  - Dyspnoea [Unknown]
  - Blood creatinine increased [Not Recovered/Not Resolved]
  - Asthenia [Recovered/Resolved]
  - Vascular stent thrombosis [Unknown]
  - Blood pressure increased [Unknown]
  - Hepatomegaly [Unknown]
  - Blood glucose increased [Unknown]
  - Blood pressure decreased [Recovered/Resolved]

NARRATIVE: CASE EVENT DATE: 2015
